FAERS Safety Report 8731268 (Version 2)
Quarter: 2012Q4

REPORT INFORMATION
  Report Type: Spontaneous
  Country: US (occurrence: None)
  Receive Date: 20120801
  Receipt Date: 20120820
  Transmission Date: 20130627
  Serious: Yes (Death, Hospitalization)
  Sender: FDA-Public Use
  Company Number: USW201207-000115

PATIENT
  Age: 70 Year
  Sex: Female

DRUGS (12)
  1. APOKYN [Suspect]
     Indication: PARKINSON^S DISEASE
     Dosage: 0.3 ML, DAILY AS NEEDED, 4 DAYS, SUBCUTANEOUS
     Route: 058
     Dates: start: 20120718, end: 20120721
  2. LEVOTHYROXINE SODIUM [Concomitant]
  3. FOSAMAX [Concomitant]
  4. SIMVASTATIN [Concomitant]
  5. LISINOPRIL [Concomitant]
  6. PROZAC [Concomitant]
  7. XANAX [Concomitant]
  8. MEPROTILINE [Concomitant]
  9. SINEMET [Concomitant]
  10. XELON PATCH [Concomitant]
  11. NORCO [Concomitant]
  12. ACETYL SALICYLIC ACID [Concomitant]

REACTIONS (7)
  - Malaise [None]
  - Loss of consciousness [None]
  - Dyspnoea [None]
  - Dysarthria [None]
  - Unresponsive to stimuli [None]
  - Myocardial infarction [None]
  - Blood pressure inadequately controlled [None]
